FAERS Safety Report 6585789-8 (Version None)
Quarter: 2010Q1

REPORT INFORMATION
  Report Type: 
  Country: None (occurrence: None)
  Receive Date: 20100217
  Receipt Date: 20100212
  Transmission Date: 20100710
  Serious: Yes (Life-Threatening, Hospitalization)
  Sender: FDA-Public Use
  Company Number: US-WYE-H13490210

PATIENT
  Age: 67 Year
  Sex: Male

DRUGS (1)
  1. DESVENLAFAXINE SUCCINATE MONOHYDRATE [Suspect]
     Indication: DEPRESSION
     Dosage: UNKNOWN
     Route: 048

REACTIONS (6)
  - ARTHRALGIA [None]
  - BUNDLE BRANCH BLOCK LEFT [None]
  - CARDIOPULMONARY FAILURE [None]
  - DELIRIUM [None]
  - ELECTROCARDIOGRAM QT PROLONGED [None]
  - RESPIRATORY FAILURE [None]
